FAERS Safety Report 5265092-9 (Version None)
Quarter: 2007Q1

REPORT INFORMATION
  Report Type: 
  Country: None (occurrence: None)
  Receive Date: 20070314
  Receipt Date: 20070302
  Transmission Date: 20070707
  Serious: Yes (Other)
  Sender: FDA-Public Use
  Company Number: GBWYE862802MAR07

PATIENT
  Sex: Male
  Weight: 91 kg

DRUGS (10)
  1. ENBREL [Suspect]
     Indication: RHEUMATOID ARTHRITIS
     Route: 058
     Dates: start: 20040715
  2. CELECOXIB [Concomitant]
     Dosage: UNKNOWN
  3. CITALOPRAM HYDROBROMIDE [Concomitant]
     Dosage: UNKNOWN
  4. FLOMAX [Concomitant]
     Dosage: UNKNOWN
  5. TRAMADOL HCL [Concomitant]
     Dosage: UNKNOWN
  6. LACTULOSE [Concomitant]
     Dosage: UNKNOWN
  7. ACETAMINOPHEN [Concomitant]
     Dosage: UNKNOWN
  8. OMEPRAZOLE [Concomitant]
     Dosage: UNKNOWN
  9. ASPIRIN [Concomitant]
     Dosage: UNKNOWN
  10. FRUMIL [Concomitant]
     Dosage: UNKNOWN

REACTIONS (2)
  - SUPERINFECTION [None]
  - ULCERATIVE KERATITIS [None]
